FAERS Safety Report 6714221-6 (Version None)
Quarter: 2010Q2

REPORT INFORMATION
  Report Type: 
  Country: None (occurrence: None)
  Receive Date: 20100504
  Receipt Date: 20100426
  Transmission Date: 20101027
  Serious: Yes (Other)
  Sender: FDA-Public Use
  Company Number: DSA_43068_2010

PATIENT

DRUGS (1)
  1. ELONTRIL (ELONTRIL - BUPROPION  HYDROCHLORIDE  EXTENDED RELEASE) (NOT [Suspect]
     Indication: DRUG USE FOR UNKNOWN INDICATION
     Dosage: (DF ORAL)
     Route: 048

REACTIONS (1)
  - PSORIASIS [None]
